FAERS Safety Report 9315890 (Version 2)
Quarter: 2013Q4

REPORT INFORMATION
  Report Type: Report from Study
  Country: DE (occurrence: DE)
  Receive Date: 20130530
  Receipt Date: 20131211
  Transmission Date: 20140711
  Serious: Yes (Hospitalization)
  Sender: FDA-Public Use
  Company Number: DE-AMGEN-DEUCT2013037930

PATIENT
  Age: 56 Year
  Sex: Female

DRUGS (8)
  1. ETANERCEPT [Suspect]
     Indication: PRODUCT USED FOR UNKNOWN INDICATION
     Dosage: 50 MG, WEEKLY
     Route: 065
  2. MTX                                /00113802/ [Concomitant]
     Dosage: 27.5 MG WEEKLY
     Dates: end: 201302
  3. BISOPROLOL [Concomitant]
     Dosage: UNK
  4. ALLOPURINOL [Concomitant]
     Dosage: UNK
  5. OMEPRAZOLE [Concomitant]
     Dosage: UNK
  6. EXFORGE HCT [Concomitant]
     Dosage: UNK
  7. SIMVASTATIN [Concomitant]
     Dosage: UNK
  8. BERLINSULIN H [Concomitant]
     Dosage: UNK

REACTIONS (1)
  - Urinary tract infection [Recovered/Resolved]
